FAERS Safety Report 6390432-7 (Version None)
Quarter: 2009Q4

REPORT INFORMATION
  Report Type: 
  Country: None (occurrence: None)
  Receive Date: 20091005
  Receipt Date: 20091005
  Transmission Date: 20100525
  Serious: Yes (Hospitalization)
  Sender: FDA-Public Use
  Company Number: None

PATIENT
  Age: 74 Year
  Sex: Male
  Weight: 62.5 kg

DRUGS (3)
  1. DICLOFENAC SODIUM [Suspect]
     Indication: OSTEOPENIA
     Dosage: 75 MG BID PO
     Route: 048
     Dates: start: 20090210, end: 20090508
  2. DICLOFENAC SODIUM [Suspect]
     Indication: PAIN
     Dosage: 75 MG BID PO
     Route: 048
     Dates: start: 20090210, end: 20090508
  3. ALENDRONATE SODIUM [Suspect]
     Dosage: 70 MG QWEEK PO
     Route: 048
     Dates: start: 20081229, end: 20090311

REACTIONS (4)
  - GASTRIC HAEMORRHAGE [None]
  - GASTRITIS [None]
  - HAEMOGLOBIN DECREASED [None]
  - OESOPHAGITIS [None]
